FAERS Safety Report 6341843-7 (Version None)
Quarter: 2009Q3

REPORT INFORMATION
  Report Type: 
  Country: None (occurrence: None)
  Receive Date: 20090904
  Receipt Date: 20090825
  Transmission Date: 20100115
  Serious: Yes (Hospitalization)
  Sender: FDA-Public Use
  Company Number: BR-ABBOTT-09P-020-0591386-00

PATIENT
  Sex: Female

DRUGS (5)
  1. HUMIRA [Suspect]
     Indication: RHEUMATOID ARTHRITIS
     Route: 058
     Dates: start: 20090529
  2. CYCLOSPORINE [Concomitant]
     Indication: RHEUMATOID ARTHRITIS
     Dates: end: 20090819
  3. HYDROXYCHLOROQUINE SULFATE [Concomitant]
     Indication: RHEUMATOID ARTHRITIS
  4. FOLIC ACID [Concomitant]
     Indication: MINERAL SUPPLEMENTATION
  5. CODATEN [Concomitant]
     Indication: PAIN

REACTIONS (6)
  - AMNESIA [None]
  - COUGH [None]
  - EPISTAXIS [None]
  - IMPATIENCE [None]
  - INFLUENZA [None]
  - SECRETION DISCHARGE [None]
